FAERS Safety Report 4734204-5 (Version None)
Quarter: 2005Q3

REPORT INFORMATION
  Report Type: 
  Country: None (occurrence: None)
  Receive Date: 20050804
  Receipt Date: 20041013
  Transmission Date: 20060218
  Serious: Yes (Hospitalization)
  Sender: FDA-Public Use
  Company Number: FR-2004-033498

PATIENT

DRUGS (2)
  1. QUADRAMET [Suspect]
  2. ZOLEDRONIC ACID (ZOLEDRONIC ACID) [Suspect]
     Dates: start: 20040914, end: 20040914

REACTIONS (1)
  - CHOLECYSTITIS [None]
